FAERS Safety Report 8105220-0 (Version None)
Quarter: 2012Q1

REPORT INFORMATION
  Report Type: 
  Country: None (occurrence: None)
  Receive Date: 20120201
  Receipt Date: 20120125
  Transmission Date: 20120608
  Serious: Yes (Other)
  Sender: FDA-Public Use
  Company Number: US-SANOFI-AVENTIS-2012SA006240

PATIENT
  Age: 63 Year
  Sex: Female
  Weight: 96 kg

DRUGS (15)
  1. BEVACIZUMAB [Suspect]
     Indication: BREAST CANCER
     Dosage: TOTAL DOSE: 1530 MG, FORM VIALS
     Route: 042
     Dates: start: 20100128, end: 20100804
  2. TRASTUZUMAB [Suspect]
     Indication: BREAST CANCER
     Route: 042
     Dates: start: 20100128
  3. ARTIFICIAL TEARS [Concomitant]
     Dates: start: 20100525, end: 20100630
  4. OMEPRAZOLE [Concomitant]
     Dates: start: 20010101
  5. LISINOPRIL [Concomitant]
     Dates: start: 20100219
  6. METFORMIN HCL [Concomitant]
     Dates: start: 20070609
  7. LOTEMAX [Concomitant]
     Dates: start: 20100525, end: 20100630
  8. TRASTUZUMAB [Suspect]
     Route: 042
     Dates: start: 20100201
  9. GLIMEPIRIDE [Concomitant]
     Dates: start: 20100219
  10. ANASTROZOLE [Concomitant]
     Dates: start: 20100626
  11. LACTIC ACID [Concomitant]
     Dates: start: 20100421
  12. RESTASIS [Concomitant]
     Dates: start: 20100525
  13. DOCETAXEL [Suspect]
     Indication: BREAST CANCER
     Dosage: FORM : VIALS, TOTAL DOSE: 160 MG
     Route: 042
     Dates: start: 20100128
  14. CARBOPLATIN [Suspect]
     Indication: BREAST CANCER
     Dosage: DOSE: 6 AUC. TOTAL DOSE 770 MG, FORM VIALS
     Route: 042
     Dates: start: 20100128
  15. LISINOPRIL [Concomitant]
     Dates: start: 20100401

REACTIONS (1)
  - EYELID FUNCTION DISORDER [None]
